FAERS Safety Report 12171768 (Version 1)
Quarter: 2016Q1

REPORT INFORMATION
  Report Type: Spontaneous
  Country: US (occurrence: None)
  Receive Date: 20160310
  Receipt Date: 20160310
  Transmission Date: 20160526
  Serious: Yes (Other)
  Sender: FDA-Public Use
  Company Number: None

PATIENT
  Age: 62 Year
  Sex: Female

DRUGS (1)
  1. AZACITIDINE. [Suspect]
     Active Substance: AZACITIDINE
     Indication: PLASMA CELL MYELOMA
     Route: 042
     Dates: start: 20160210, end: 20160210

REACTIONS (2)
  - Product packaging confusion [None]
  - Incorrect dose administered [None]

NARRATIVE: CASE EVENT DATE: 20160210
